FAERS Safety Report 20121906 (Version 1)
Quarter: 2021Q4

REPORT INFORMATION
  Report Type: Spontaneous
  Country: US (occurrence: US)
  Receive Date: 20211128
  Receipt Date: 20211128
  Transmission Date: 20220303
  Serious: No
  Sender: FDA-Public Use
  Company Number: US-PURDUE-USA-2020-0230742

PATIENT
  Sex: Male

DRUGS (1)
  1. MORPHINE SULFATE [Suspect]
     Active Substance: MORPHINE SULFATE
     Indication: Pain
     Dosage: 1 DF, TID PRN
     Route: 048

REACTIONS (5)
  - Sleep disorder [Unknown]
  - Sluggishness [Unknown]
  - Constipation [Unknown]
  - Dizziness [Unknown]
  - Pruritus [Unknown]
